FAERS Safety Report 7261124-7 (Version None)
Quarter: 2011Q1

REPORT INFORMATION
  Report Type: 
  Country: None (occurrence: None)
  Receive Date: 20110130
  Receipt Date: 20101230
  Transmission Date: 20110831
  Serious: No
  Sender: FDA-Public Use
  Company Number: US-ABBOTT-10P-163-0694368-00

PATIENT
  Sex: Female
  Weight: 88.53 kg

DRUGS (8)
  1. PLAQUENIL [Concomitant]
     Indication: PRODUCT USED FOR UNKNOWN INDICATION
  2. NAPROXEN [Concomitant]
     Indication: PRODUCT USED FOR UNKNOWN INDICATION
  3. AMITRIPTYLINE HCL [Concomitant]
     Indication: INSOMNIA
     Dosage: AT BEDTIME
  4. REQUIP [Concomitant]
     Indication: RESTLESS LEGS SYNDROME
  5. NEURONTIN [Concomitant]
     Indication: NEURALGIA
     Dosage: AS REQUIRED
  6. ARAVA [Concomitant]
     Indication: IMMUNE SYSTEM DISORDER
  7. HUMIRA [Suspect]
     Indication: RHEUMATOID ARTHRITIS
     Dates: start: 20050101
  8. TOPAMAX [Concomitant]
     Indication: NERVOUS SYSTEM DISORDER

REACTIONS (3)
  - INJECTION SITE HAEMATOMA [None]
  - INJECTION SITE INDURATION [None]
  - INJECTION SITE PAIN [None]
